FAERS Safety Report 8800198 (Version 1)
Quarter: 2012Q4

REPORT INFORMATION
  Report Type: 
  Country: US (occurrence: US)
  Receive Date: 20120921
  Receipt Date: 20120921
  Transmission Date: 20130627
  Serious: Yes (Other)
  Sender: FDA-Public Use
  Company Number: PHEH2012US018261

PATIENT
  Sex: Female

DRUGS (1)
  1. AFINITOR [Suspect]
     Dosage: 10 mg, QD
     Route: 048
     Dates: start: 201208, end: 20120917

REACTIONS (3)
  - Ascites [Unknown]
  - Pleural effusion [Unknown]
  - Oedema [Unknown]
